FAERS Safety Report 5210324-6 (Version None)
Quarter: 2007Q1

REPORT INFORMATION
  Report Type: 
  Country: None (occurrence: None)
  Receive Date: 20070117
  Receipt Date: 20070111
  Transmission Date: 20070707
  Serious: Yes (Other)
  Sender: FDA-Public Use
  Company Number: US-JNJFOC-20061006959

PATIENT
  Sex: Male
  Weight: 70.31 kg

DRUGS (4)
  1. REMICADE [Suspect]
     Indication: COLITIS ULCERATIVE
     Route: 042
  2. AZATHIOPRINE [Suspect]
     Indication: COLITIS ULCERATIVE
  3. COLAZAL [Concomitant]
     Indication: COLITIS ULCERATIVE
  4. PREDNISONE TAB [Concomitant]

REACTIONS (2)
  - DIFFUSE LARGE B-CELL LYMPHOMA [None]
  - INFUSION RELATED REACTION [None]
